FAERS Safety Report 9297970 (Version 2)
Quarter: 2013Q2

REPORT INFORMATION
  Report Type: Spontaneous
  Country: BR (occurrence: BR)
  Receive Date: 20130520
  Receipt Date: 20130524
  Transmission Date: 20140414
  Serious: Yes (Other)
  Sender: FDA-Public Use
  Company Number: BR-PFIZER INC-2013151912

PATIENT
  Age: 61 Year
  Sex: Female
  Weight: 48 kg

DRUGS (2)
  1. CHAMPIX [Suspect]
     Indication: SMOKING CESSATION THERAPY
     Dosage: UNK
     Dates: start: 20130503
  2. ALPRAZOLAM [Suspect]
     Dosage: UNK
     Route: 048

REACTIONS (5)
  - Dyspnoea [Recovering/Resolving]
  - Blood pressure decreased [Unknown]
  - Nausea [Unknown]
  - Somnolence [Unknown]
  - Weight decreased [Unknown]
